FAERS Safety Report 7632045-2 (Version None)
Quarter: 2011Q3

REPORT INFORMATION
  Report Type: 
  Country: None (occurrence: None)
  Receive Date: 20110725
  Receipt Date: 20110522
  Transmission Date: 20111222
  Serious: No
  Sender: FDA-Public Use
  Company Number: US-BRISTOL-MYERS SQUIBB COMPANY-15766314

PATIENT
  Age: 76 Year
  Sex: Male

DRUGS (5)
  1. TOPROL-XL [Concomitant]
  2. DIOVAN [Concomitant]
  3. COUMADIN [Suspect]
     Dosage: 1DF:COUMADIN 7.5 MG EVERY DAY OUT OF THE WEEK AND 10 MG ON WEDNESDAY
     Dates: start: 19810101
  4. LIPITOR [Concomitant]
  5. LOVAZA [Concomitant]

REACTIONS (1)
  - INTERNATIONAL NORMALISED RATIO INCREASED [None]
